FAERS Safety Report 20065878 (Version 1)
Quarter: 2021Q4

REPORT INFORMATION
  Report Type: Spontaneous
  Country: BR (occurrence: BR)
  Receive Date: 20211114
  Receipt Date: 20211114
  Transmission Date: 20220303
  Serious: Yes (Other)
  Sender: FDA-Public Use
  Company Number: None

PATIENT
  Sex: Male

DRUGS (6)
  1. LOSARTAN POTASSIUM [Suspect]
     Active Substance: LOSARTAN POTASSIUM
     Dosage: SKIPPED DOSE, EVERY 12 HOURS
  2. METFORMIN HYDROCHLORIDE\VILDAGLIPTIN [Suspect]
     Active Substance: METFORMIN HYDROCHLORIDE\VILDAGLIPTIN
     Dosage: UNKNOWN DOSE, TWICE A DAY (50/1000 MG) (STARTED 10 YEARS AGO)
  3. VILDAGLIPTIN [Suspect]
     Active Substance: VILDAGLIPTIN
     Dosage: UNK
  4. ROSUVASTATIN CALCIUM [Concomitant]
     Active Substance: ROSUVASTATIN CALCIUM
     Dosage: UNK
  5. JARDIANCE [Concomitant]
     Active Substance: EMPAGLIFLOZIN
     Dosage: UNK
  6. METFORMIN HYDROCHLORIDE [Concomitant]
     Active Substance: METFORMIN HYDROCHLORIDE
     Dosage: UNK

REACTIONS (3)
  - Diabetes mellitus [Unknown]
  - Tendonitis [Unknown]
  - Hypoacusis [Not Recovered/Not Resolved]
